FAERS Safety Report 22958722 (Version 2)
Quarter: 2023Q4

REPORT INFORMATION
  Report Type: Spontaneous
  Country: AT (occurrence: AT)
  Receive Date: 20230919
  Receipt Date: 20231017
  Transmission Date: 20240109
  Serious: Yes (Other)
  Sender: FDA-Public Use
  Company Number: AT-SUN PHARMACEUTICAL INDUSTRIES LTD-2023R1-408707

PATIENT
  Age: 31 Year
  Sex: Female

DRUGS (9)
  1. MIRTAZAPINE [Suspect]
     Active Substance: MIRTAZAPINE
     Indication: Psoriatic arthropathy
     Dosage: 15 MILLIGRAM, DAILY
     Route: 048
  2. MIRTAZAPINE [Suspect]
     Active Substance: MIRTAZAPINE
     Indication: Borderline personality disorder
  3. TIZANIDINE [Suspect]
     Active Substance: TIZANIDINE
     Indication: Psoriatic arthropathy
     Dosage: 4 MILLIGRAM, DAILY
     Route: 048
  4. TIZANIDINE [Suspect]
     Active Substance: TIZANIDINE
     Indication: Borderline personality disorder
  5. TOFACITINIB [Suspect]
     Active Substance: TOFACITINIB
     Indication: Psoriatic arthropathy
     Dosage: 5 MILLIGRAM, DAILY
     Route: 048
  6. TOFACITINIB [Suspect]
     Active Substance: TOFACITINIB
     Indication: Borderline personality disorder
  7. ZOLPIDEM [Suspect]
     Active Substance: ZOLPIDEM TARTRATE
     Indication: Psoriatic arthropathy
     Dosage: 10 MILLIGRAM, DAILY
     Route: 048
  8. ZOLPIDEM [Suspect]
     Active Substance: ZOLPIDEM TARTRATE
     Indication: Borderline personality disorder
  9. LEVOMETHADONE [Suspect]
     Active Substance: LEVOMETHADONE
     Indication: Product used for unknown indication
     Dosage: 45 MILLIGRAM, DAILY
     Route: 065

REACTIONS (1)
  - Pancreatitis necrotising [Recovered/Resolved]
